FAERS Safety Report 7916534-9 (Version None)
Quarter: 2011Q4

REPORT INFORMATION
  Report Type: 
  Country: None (occurrence: None)
  Receive Date: 20111116
  Receipt Date: 20111103
  Transmission Date: 20120403
  Serious: Yes (Other)
  Sender: FDA-Public Use
  Company Number: US-ELI_LILLY_AND_COMPANY-US201111003776

PATIENT
  Sex: Female

DRUGS (3)
  1. CALCIUM [Concomitant]
     Dosage: 500 MG, UNK
  2. FORTEO [Suspect]
     Indication: OSTEOPOROSIS
     Dosage: 20 UG, QD
     Dates: start: 20111027
  3. CALCIUM [Concomitant]
     Dosage: 1500 MG, UNK

REACTIONS (10)
  - TUMOUR MARKER INCREASED [None]
  - HYPERTENSION [None]
  - DEPRESSED MOOD [None]
  - EXTRASYSTOLES [None]
  - BLOOD CALCIUM INCREASED [None]
  - SOFT TISSUE NEOPLASM [None]
  - PERSONALITY CHANGE [None]
  - MALAISE [None]
  - PAIN [None]
  - CONSTIPATION [None]
